FAERS Safety Report 16376869 (Version 11)
Quarter: 2019Q4

REPORT INFORMATION
  Report Type: Spontaneous
  Country: FI (occurrence: FI)
  Receive Date: 20190531
  Receipt Date: 20191003
  Transmission Date: 20200122
  Serious: Yes (Hospitalization, Other)
  Sender: FDA-Public Use
  Company Number: FI-PFIZER INC-2019229903

PATIENT
  Age: 71 Year
  Sex: Female

DRUGS (9)
  1. VOLTAREN [Suspect]
     Active Substance: DICLOFENAC SODIUM
     Indication: MYALGIA
     Dosage: 2 DF, 2X/DAY (OR 4 DOSAGE FORM QD)
     Route: 048
     Dates: start: 20190316, end: 20190318
  2. CALCICHEW D3 [Concomitant]
     Active Substance: CALCIUM\CHOLECALCIFEROL
     Dosage: UNK, QD
     Route: 065
  3. CALCIUM +D3 [Concomitant]
     Active Substance: CALCIUM\CHOLECALCIFEROL
     Indication: BONE DISORDER
     Dosage: UNK
     Route: 065
  4. SOMAC [Suspect]
     Active Substance: PANTOPRAZOLE SODIUM
     Dosage: UNK UNK, BID
     Route: 065
     Dates: end: 2019
  5. VOLTAREN [Suspect]
     Active Substance: DICLOFENAC SODIUM
     Indication: FLANK PAIN
  6. CALCIUM + VITAMIN D3 [Concomitant]
     Active Substance: CALCIUM CARBONATE\CHOLECALCIFEROL
     Indication: BONE DISORDER
     Dosage: UNK
     Route: 065
  7. HISTEC [Concomitant]
     Active Substance: CETIRIZINE HYDROCHLORIDE
     Dosage: 10 MG, UNK
     Route: 048
  8. OCULAC [Concomitant]
     Dosage: 1 GTT DROPS
     Route: 047
  9. NORFLEX [Concomitant]
     Active Substance: ORPHENADRINE CITRATE
     Dosage: UNK UNK, QD
     Route: 065

REACTIONS (29)
  - Frequent bowel movements [Unknown]
  - Fall [Recovered/Resolved]
  - Haematemesis [Unknown]
  - Red blood cell count decreased [Unknown]
  - Diarrhoea [Unknown]
  - Red cell distribution width increased [Recovered/Resolved]
  - Dieulafoy^s vascular malformation [Recovered/Resolved]
  - Coccydynia [Recovered/Resolved]
  - Blood sodium decreased [Unknown]
  - Melaena [Recovered/Resolved]
  - Rectal haemorrhage [Recovered/Resolved]
  - Blood chloride increased [Recovered/Resolved]
  - Red cell distribution width increased [Recovered/Resolved]
  - Haemoglobin decreased [Recovered/Resolved]
  - Electrocardiogram abnormal [Recovered/Resolved]
  - Hypotension [Recovered/Resolved]
  - Gastric ulcer [Recovered/Resolved]
  - Blood albumin decreased [Unknown]
  - Vomiting [Recovered/Resolved]
  - Arterial rupture [Recovered/Resolved]
  - Asthenia [Recovered/Resolved]
  - Haemorrhage [Recovered/Resolved]
  - Haematocrit decreased [Unknown]
  - Syncope [Recovered/Resolved]
  - Loss of consciousness [Recovered/Resolved]
  - Mouth haemorrhage [Recovered/Resolved]
  - Dizziness [Unknown]
  - Headache [Recovered/Resolved]
  - Back injury [Recovered/Resolved]

NARRATIVE: CASE EVENT DATE: 201903
